FAERS Safety Report 10012396 (Version 1)
Quarter: 2014Q1

REPORT INFORMATION
  Report Type: Spontaneous
  Country: US (occurrence: US)
  Receive Date: 20140312
  Receipt Date: 20140312
  Transmission Date: 20141002
  Serious: No
  Sender: FDA-Public Use
  Company Number: US-PFIZER INC-2014069054

PATIENT
  Sex: 0

DRUGS (4)
  1. NEURONTIN [Suspect]
     Indication: NECK INJURY
     Dosage: UNK
  2. NEURONTIN [Suspect]
     Indication: JOINT INJURY
  3. NORCO [Suspect]
     Indication: NECK INJURY
     Dosage: UNK
  4. NORCO [Suspect]
     Indication: UPPER LIMB FRACTURE

REACTIONS (1)
  - Drug ineffective [Unknown]
